FAERS Safety Report 23052320 (Version 1)
Quarter: 2023Q4

REPORT INFORMATION
  Report Type: Report from Study
  Country: DE (occurrence: DE)
  Receive Date: 20231010
  Receipt Date: 20231010
  Transmission Date: 20240109
  Serious: Yes (Hospitalization)
  Sender: FDA-Public Use
  Company Number: DE-BAXTER-2023BAX032849

PATIENT
  Age: 56 Year
  Sex: Male

DRUGS (4)
  1. CERNEVIT [Suspect]
     Active Substance: VITAMINS
     Indication: Parenteral nutrition
     Dosage: 750 MG AT AN UNSPECIFIED FREQUENCY
     Route: 042
     Dates: start: 20230224
  2. OLIMEL [Suspect]
     Active Substance: AMINO ACIDS\DEXTROSE\SOYBEAN OIL
     Indication: Parenteral nutrition
     Dosage: 1500 ML AT AN UNSPECIFIED FREQUENCY
     Route: 042
     Dates: start: 20230224
  3. ELECTROLYTES NOS\MINERALS [Suspect]
     Active Substance: ELECTROLYTES NOS\MINERALS
     Indication: Parenteral nutrition
     Dosage: 10 ML AT AN UNSPECIFIED FREQUENCY
     Route: 042
     Dates: start: 20230224
  4. UNSPECIFIED INGREDIENT [Suspect]
     Active Substance: UNSPECIFIED INGREDIENT
     Route: 065

REACTIONS (1)
  - Cyst [Not Recovered/Not Resolved]

NARRATIVE: CASE EVENT DATE: 20231005
